FAERS Safety Report 25470130 (Version 1)
Quarter: 2025Q2

REPORT INFORMATION
  Report Type: Spontaneous
  Country: GB (occurrence: GB)
  Receive Date: 20250623
  Receipt Date: 20250623
  Transmission Date: 20250717
  Serious: Yes (Other)
  Sender: ABBVIE
  Company Number: None

PATIENT
  Age: 57 Year
  Sex: Female

DRUGS (3)
  1. ADALIMUMAB [Suspect]
     Active Substance: ADALIMUMAB
     Indication: Product used for unknown indication
     Route: 058
  2. ENTYVIO [Suspect]
     Active Substance: VEDOLIZUMAB
     Indication: Product used for unknown indication
     Route: 065
  3. USTEKINUMAB [Suspect]
     Active Substance: USTEKINUMAB
     Indication: Product used for unknown indication
     Route: 065

REACTIONS (13)
  - Anaemia [Unknown]
  - Influenza like illness [Not Recovered/Not Resolved]
  - Weight decreased [Unknown]
  - Hot flush [Unknown]
  - Dyspnoea [Unknown]
  - Hypokinesia [Unknown]
  - Rash [Unknown]
  - Urticaria [Unknown]
  - Poor quality sleep [Unknown]
  - Pruritus [Unknown]
  - Rectal haemorrhage [Unknown]
  - Nasopharyngitis [Not Recovered/Not Resolved]
  - Unevaluable event [Not Recovered/Not Resolved]
